FAERS Safety Report 16617731 (Version 1)
Quarter: 2019Q3

REPORT INFORMATION
  Report Type: Spontaneous
  Country: US (occurrence: US)
  Receive Date: 20190610
  Receipt Date: 20190610
  Transmission Date: 20191004
  Serious: No
  Sender: FDA-Public Use
  Company Number: None

PATIENT
  Age: 24 Year
  Sex: Female

DRUGS (1)
  1. REBIF REBIDOSE [Suspect]
     Active Substance: INTERFERON BETA-1A
     Route: 058
     Dates: start: 201902

REACTIONS (6)
  - Menstruation delayed [None]
  - Headache [None]
  - Chromaturia [None]
  - Body temperature increased [None]
  - Hepatic enzyme increased [None]
  - Chest pain [None]

NARRATIVE: CASE EVENT DATE: 20190610
